FAERS Safety Report 8444339-1 (Version None)
Quarter: 2012Q2

REPORT INFORMATION
  Report Type: 
  Country: None (occurrence: None)
  Receive Date: 20120618
  Receipt Date: 20120604
  Transmission Date: 20120825
  Serious: Yes (Other)
  Sender: FDA-Public Use
  Company Number: US-BAYER-2012-056444

PATIENT
  Age: 69 Year
  Sex: Male
  Weight: 88 kg

DRUGS (4)
  1. MULTI-VITAMIN [Concomitant]
  2. VITAMIN D [Concomitant]
  3. ASPIRIN [Suspect]
     Indication: TOOTHACHE
     Dosage: BOTTLE COUNT 20S
     Route: 048
     Dates: start: 20120602, end: 20120602
  4. CALCIUM [Concomitant]

REACTIONS (1)
  - EYE HAEMORRHAGE [None]
